FAERS Safety Report 8816784 (Version 1)
Quarter: 2012Q4

REPORT INFORMATION
  Report Type: Spontaneous
  Country: DE (occurrence: None)
  Receive Date: 20121001
  Receipt Date: 20121001
  Transmission Date: 20130627
  Serious: Yes (Hospitalization)
  Sender: FDA-Public Use
  Company Number: ABR_00633_2012

PATIENT
  Age: 34 Year
  Sex: Female

DRUGS (1)
  1. ERYTHROMYCIN [Suspect]
     Route: 048
     Dates: start: 20111124, end: 20111124

REACTIONS (5)
  - Abdominal distension [None]
  - Abdominal pain upper [None]
  - Hunger [None]
  - Nausea [None]
  - Respiratory distress [None]
